FAERS Safety Report 6302357-3 (Version None)
Quarter: 2009Q3

REPORT INFORMATION
  Report Type: 
  Country: None (occurrence: None)
  Receive Date: 20090810
  Receipt Date: 20090731
  Transmission Date: 20100115
  Serious: Yes (Other)
  Sender: FDA-Public Use
  Company Number: PHHY2009JP32289

PATIENT
  Age: 60 Year
  Sex: Female

DRUGS (2)
  1. DIOVAN [Suspect]
     Indication: HYPERTENSION
     Dosage: 80 MG DAILY
     Route: 048
  2. CALCIUM CHANNEL BLOCKERS [Concomitant]
     Dosage: UNK

REACTIONS (3)
  - APHONIA [None]
  - CEREBRAL INFARCTION [None]
  - DIZZINESS [None]
